FAERS Safety Report 8051295-7 (Version None)
Quarter: 2012Q1

REPORT INFORMATION
  Report Type: 
  Country: None (occurrence: None)
  Receive Date: 20120117
  Receipt Date: 20120104
  Transmission Date: 20120608
  Serious: Yes (Death, Hospitalization, Other)
  Sender: FDA-Public Use
  Company Number: US-RB-036243-12

PATIENT
  Age: 3 Year
  Sex: Female

DRUGS (1)
  1. BUPRENORPHINE [Suspect]
     Indication: ACCIDENTAL DRUG INTAKE BY CHILD
     Dosage: UNKNOWN DOSAGE
     Route: 048
     Dates: end: 20100101

REACTIONS (14)
  - LOSS OF CONSCIOUSNESS [None]
  - CEREBELLAR INFARCTION [None]
  - BRAIN HERNIATION [None]
  - METABOLIC ACIDOSIS [None]
  - RESPIRATORY ACIDOSIS [None]
  - HEAD INJURY [None]
  - MIOSIS [None]
  - UNRESPONSIVE TO STIMULI [None]
  - VOMITING [None]
  - RESPIRATORY DEPRESSION [None]
  - ACCIDENTAL DRUG INTAKE BY CHILD [None]
  - SOMNOLENCE [None]
  - SINUS TACHYCARDIA [None]
  - BRAIN DEATH [None]
